FAERS Safety Report 6894196-X (Version None)
Quarter: 2010Q3

REPORT INFORMATION
  Report Type: 
  Country: None (occurrence: None)
  Receive Date: 20100802
  Receipt Date: 20100719
  Transmission Date: 20110219
  Serious: Yes (Other)
  Sender: FDA-Public Use
  Company Number: PHHY2010CA47634

PATIENT
  Sex: Male

DRUGS (3)
  1. LOPRESSOR [Suspect]
  2. METOPROLOL TARTRATE [Suspect]
  3. THEOPHYLLINE [Concomitant]

REACTIONS (3)
  - DYSPNOEA [None]
  - FEELING ABNORMAL [None]
  - VITAL CAPACITY DECREASED [None]
